FAERS Safety Report 8581312-7 (Version None)
Quarter: 2012Q3

REPORT INFORMATION
  Report Type: 
  Country: None (occurrence: None)
  Receive Date: 20120727
  Receipt Date: 20120712
  Transmission Date: 20120928
  Serious: Yes (Other)
  Sender: FDA-Public Use
  Company Number: 012437

PATIENT
  Age: 54 Year
  Sex: Male

DRUGS (3)
  1. CYCLOPHOSPHAMIDE [Concomitant]
  2. ALEMTUZUMAB (ALEMTUZUMAB) [Concomitant]
  3. BUSULFEX [Suspect]
     Dosage: INTRAVENOUS
     Route: 042

REACTIONS (1)
  - GRAFT VERSUS HOST DISEASE IN SKIN [None]
